FAERS Safety Report 9739040 (Version 1)
Quarter: 2013Q4

REPORT INFORMATION
  Report Type: Spontaneous
  Country: US (occurrence: US)
  Receive Date: 20131209
  Receipt Date: 20131209
  Transmission Date: 20140711
  Serious: Yes (Hospitalization)
  Sender: FDA-Public Use
  Company Number: US-BAYER-2013-148704

PATIENT
  Age: 41 Year
  Sex: Female
  Weight: 71.2 kg

DRUGS (2)
  1. YAZ [Suspect]
  2. LEVOTHYROXINE [Concomitant]
     Indication: HYPOTHYROIDISM
     Dosage: 50 ?G, UNK

REACTIONS (2)
  - Pulmonary embolism [None]
  - Deep vein thrombosis [None]
